FAERS Safety Report 8174021-X (Version None)
Quarter: 2012Q1

REPORT INFORMATION
  Report Type: 
  Country: None (occurrence: None)
  Receive Date: 20120229
  Receipt Date: 20120220
  Transmission Date: 20120608
  Serious: Yes (Death, Life-Threatening, Hospitalization)
  Sender: FDA-Public Use
  Company Number: DE-ROCHE-1043207

PATIENT
  Sex: Male
  Weight: 80 kg

DRUGS (7)
  1. ACTIVASE [Suspect]
  2. LISINOPRIL [Suspect]
     Indication: HYPERTENSION
     Route: 048
  3. DIAMOX SRC [Concomitant]
     Indication: CATARACT
  4. ACTIVASE [Suspect]
     Indication: CEREBRAL INFARCTION
     Route: 042
     Dates: start: 20120207
  5. MOVIPREP [Concomitant]
     Indication: CONSTIPATION
  6. L-THYROX [Concomitant]
     Indication: THYROID DISORDER
  7. SIMVASTATIN [Concomitant]
     Indication: PROPHYLAXIS

REACTIONS (6)
  - DYSPNOEA [None]
  - BRAIN DEATH [None]
  - CYANOSIS [None]
  - ANGIOEDEMA [None]
  - RESPIRATORY FAILURE [None]
  - TRACHEAL OEDEMA [None]
